FAERS Safety Report 7255321-4 (Version None)
Quarter: 2011Q1

REPORT INFORMATION
  Report Type: 
  Country: None (occurrence: None)
  Receive Date: 20110129
  Receipt Date: 20100309
  Transmission Date: 20110831
  Serious: No
  Sender: FDA-Public Use
  Company Number: US-ABBOTT-10P-163-0632181-00

PATIENT
  Sex: Female

DRUGS (1)
  1. HUMIRA [Suspect]
     Indication: CROHN'S DISEASE
     Route: 058
     Dates: start: 20080101, end: 20100201

REACTIONS (6)
  - ARTHRALGIA [None]
  - LETHARGY [None]
  - DIZZINESS [None]
  - HEADACHE [None]
  - MYALGIA [None]
  - VIRAL INFECTION [None]
